FAERS Safety Report 6056481-3 (Version None)
Quarter: 2009Q1

REPORT INFORMATION
  Report Type: 
  Country: None (occurrence: None)
  Receive Date: 20090129
  Receipt Date: 20090122
  Transmission Date: 20090719
  Serious: Yes (Hospitalization)
  Sender: FDA-Public Use
  Company Number: PHHY2009MX02603

PATIENT
  Age: 52 Year
  Sex: Female

DRUGS (1)
  1. ZELMAC [Suspect]
     Indication: IRRITABLE BOWEL SYNDROME
     Dosage: 6 MG/DAY (2 TABLETS/DAY)
     Route: 048
     Dates: start: 20071201

REACTIONS (2)
  - HYSTERECTOMY [None]
  - INFREQUENT BOWEL MOVEMENTS [None]
